FAERS Safety Report 8554207-2 (Version None)
Quarter: 2012Q3

REPORT INFORMATION
  Report Type: 
  Country: None (occurrence: None)
  Receive Date: 20120731
  Receipt Date: 20120719
  Transmission Date: 20120928
  Serious: Yes (Hospitalization, Other)
  Sender: FDA-Public Use
  Company Number: ZA-ELI_LILLY_AND_COMPANY-ZA201207006863

PATIENT
  Sex: Male

DRUGS (2)
  1. HUMULIN 70/30 [Suspect]
     Dosage: 16 IU, EACH EVENING
     Route: 058
     Dates: start: 20020101
  2. HUMULIN 70/30 [Suspect]
     Indication: TYPE 2 DIABETES MELLITUS
     Dosage: 32 IU, EACH MORNING
     Route: 058
     Dates: start: 20020101

REACTIONS (3)
  - DIABETES MELLITUS INADEQUATE CONTROL [None]
  - BLOOD GLUCOSE INCREASED [None]
  - LOCALISED INFECTION [None]
